APPROVED DRUG PRODUCT: PERMITIL
Active Ingredient: FLUPHENAZINE HYDROCHLORIDE
Strength: 1MG
Dosage Form/Route: TABLET, EXTENDED RELEASE;ORAL
Application: N012419 | Product #004
Applicant: SCHERING CORP SUB SCHERING PLOUGH CORP
Approved: Approved Prior to Jan 1, 1982 | RLD: No | RS: No | Type: DISCN